FAERS Safety Report 26165023 (Version 1)
Quarter: 2025Q4

REPORT INFORMATION
  Report Type: Spontaneous
  Country: US (occurrence: US)
  Receive Date: 20251216
  Receipt Date: 20251216
  Transmission Date: 20260117
  Serious: No
  Sender: SANOFI AVENTIS
  Company Number: US-SA-2025SA370524

PATIENT
  Sex: Male

DRUGS (4)
  1. ALPROLIX [Suspect]
     Active Substance: EFTRENONACOG ALFA
     Indication: Factor IX deficiency
     Dosage: 2665 UNITS (2399-2931) SLOW IV PUSH FOR MILD/MODERATE BLEEDS
     Route: 042
  2. ALPROLIX [Suspect]
     Active Substance: EFTRENONACOG ALFA
     Indication: Factor IX deficiency
     Dosage: 2665 UNITS (2399-2931) SLOW IV PUSH FOR MILD/MODERATE BLEEDS
     Route: 042
  3. ALPROLIX [Suspect]
     Active Substance: EFTRENONACOG ALFA
     Dosage: 5330 UNITS (4797-5863) EVERY 12-24 HOURS AS NEEDED FOR MAJOR BLEEDS
     Route: 042
  4. ALPROLIX [Suspect]
     Active Substance: EFTRENONACOG ALFA
     Dosage: 5330 UNITS (4797-5863) EVERY 12-24 HOURS AS NEEDED FOR MAJOR BLEEDS
     Route: 042

REACTIONS (3)
  - Haemorrhage [Unknown]
  - Joint swelling [Unknown]
  - Burning sensation [Unknown]
